FAERS Safety Report 6032693-X (Version None)
Quarter: 2009Q1

REPORT INFORMATION
  Report Type: 
  Country: None (occurrence: None)
  Receive Date: 20090109
  Receipt Date: 20090107
  Transmission Date: 20090719
  Serious: Yes (Death, Life-Threatening)
  Sender: FDA-Public Use
  Company Number: IL-NOVOPROD-282849

PATIENT
  Age: 40 Year
  Sex: Male

DRUGS (2)
  1. NOVOSEVEN [Suspect]
     Indication: HAEMORRHAGE
     Dosage: 1.2 MG, QID
     Dates: start: 20080101, end: 20080101
  2. NOVOSEVEN [Suspect]
     Indication: FACTOR VII DEFICIENCY

REACTIONS (1)
  - SEPSIS [None]
